FAERS Safety Report 9382692 (Version 1)
Quarter: 2013Q3

REPORT INFORMATION
  Report Type: Spontaneous
  Country: CN (occurrence: CN)
  Receive Date: 20130703
  Receipt Date: 20130703
  Transmission Date: 20140515
  Serious: Yes (Other)
  Sender: FDA-Public Use
  Company Number: CN-GLAXOSMITHKLINE-B0904451A

PATIENT
  Sex: Female
  Weight: 55 kg

DRUGS (2)
  1. CEFUROXIME SODIUM [Suspect]
     Indication: INFECTION PROPHYLAXIS
     Dosage: 1G PER DAY
     Route: 042
     Dates: start: 20120210, end: 20120210
  2. CISATRACURIUM BESYLATE [Suspect]
     Indication: ANAESTHESIA
     Dosage: 50MG PER DAY
     Route: 042
     Dates: start: 20120210, end: 20120210

REACTIONS (9)
  - Anaphylactic shock [Recovered/Resolved]
  - Blood pressure decreased [Recovered/Resolved]
  - Conjunctival hyperaemia [Recovered/Resolved]
  - Oedema [Recovered/Resolved]
  - Erythema [Recovered/Resolved]
  - Cyanosis [Recovered/Resolved]
  - Rash generalised [Recovered/Resolved]
  - Heart rate decreased [Recovered/Resolved]
  - Oxygen saturation [Recovered/Resolved]
